FAERS Safety Report 6904703 (Version 2)
Quarter: 2020Q3

REPORT INFORMATION
  Report Type: Report from Study
  Country: US (occurrence: US)
  Receive Date: 20090209
  Receipt Date: 20090303
  Transmission Date: 20201104
  Serious: Yes (Death)
  Sender: FDA-Public Use
  Company Number: US-ROCHE-612106

PATIENT
  Age: 83 Year
  Sex: Female

DRUGS (1)
  1. IBANDRONIC ACID. [Suspect]
     Active Substance: IBANDRONIC ACID
     Indication: OSTEOPOROSIS
     Route: 065
     Dates: start: 2006

REACTIONS (5)
  - Abdominal discomfort [Unknown]
  - Arteriosclerosis coronary artery [Fatal]
  - Cardiac failure congestive [Fatal]
  - Renal disorder [Fatal]
  - Mitral valve incompetence [Fatal]
